FAERS Safety Report 6667374-2 (Version None)
Quarter: 2010Q2

REPORT INFORMATION
  Report Type: 
  Country: None (occurrence: None)
  Receive Date: 20100405
  Receipt Date: 20100322
  Transmission Date: 20101027
  Serious: Yes (Other)
  Sender: FDA-Public Use
  Company Number: PHHY2010IR20097

PATIENT
  Age: 25 Year
  Sex: Male

DRUGS (4)
  1. CYCLOSPORINE [Suspect]
     Indication: ANGIOLYMPHOID HYPERPLASIA WITH EOSINOPHILIA
     Dosage: 200 MG, BID
     Route: 048
  2. CYCLOSPORINE [Suspect]
     Dosage: 50 MG, BID
     Route: 048
  3. CYCLOSPORINE [Suspect]
     Dosage: 25 MG DAILY
     Route: 048
  4. PREDNISOLONE [Concomitant]
     Dosage: 1 MG/KG DAILY
     Route: 048

REACTIONS (7)
  - BLOOD PRESSURE INCREASED [None]
  - ERYTHEMA [None]
  - HEADACHE [None]
  - PANNICULITIS [None]
  - PRURITUS [None]
  - SKIN LESION [None]
  - VERTIGO [None]
